FAERS Safety Report 15710929 (Version 4)
Quarter: 2019Q4

REPORT INFORMATION
  Report Type: Report from Study
  Country: US (occurrence: US)
  Receive Date: 20181211
  Receipt Date: 20191125
  Transmission Date: 20200122
  Serious: Yes (Death, Life-Threatening, Other)
  Sender: FDA-Public Use
  Company Number: PHEH2018US051599

PATIENT
  Age: 71 Year
  Sex: Male

DRUGS (3)
  1. KYMRIAH [Suspect]
     Active Substance: TISAGENLECLEUCEL
     Indication: DIFFUSE LARGE B-CELL LYMPHOMA REFRACTORY
     Dosage: UNK UNK, ONCE/SINGLE
     Route: 042
     Dates: start: 2018
  2. CYCLOPHOSPHAMIDE. [Concomitant]
     Active Substance: CYCLOPHOSPHAMIDE
     Indication: CHEMOTHERAPY
     Route: 065
  3. FLUDARABINE [Concomitant]
     Active Substance: FLUDARABINE PHOSPHATE
     Indication: CHEMOTHERAPY
     Route: 065

REACTIONS (20)
  - Hypoxia [Fatal]
  - Staphylococcal infection [Fatal]
  - Diffuse large B-cell lymphoma refractory [Fatal]
  - Neurological symptom [Recovering/Resolving]
  - Malignant neoplasm progression [Fatal]
  - Hypotension [Fatal]
  - Human herpesvirus 6 infection [Fatal]
  - Aphasia [Unknown]
  - Aspergillus infection [Fatal]
  - Platelet count decreased [Unknown]
  - Hypogammaglobulinaemia [Unknown]
  - White blood cell count decreased [Unknown]
  - Neurotoxicity [Unknown]
  - Cytokine release syndrome [Fatal]
  - Mucormycosis [Fatal]
  - Haemoglobin decreased [Unknown]
  - Depressed level of consciousness [Unknown]
  - Pyrexia [Fatal]
  - Haematocrit decreased [Unknown]
  - Epstein-Barr virus infection [Fatal]
